FAERS Safety Report 6879923-X (Version None)
Quarter: 2010Q3

REPORT INFORMATION
  Report Type: 
  Country: None (occurrence: None)
  Receive Date: 20100728
  Receipt Date: 20100726
  Transmission Date: 20110219
  Serious: Yes (Death, Life-Threatening, Hospitalization)
  Sender: FDA-Public Use
  Company Number: FR-SANOFI-AVENTIS-2010SA043563

PATIENT
  Age: 58 Year
  Sex: Female

DRUGS (5)
  1. TAXOTERE [Suspect]
     Indication: BREAST CANCER
     Route: 041
     Dates: start: 20061201, end: 20070101
  2. CYCLOPHOSPHAMIDE [Suspect]
     Indication: BREAST CANCER
     Route: 041
     Dates: start: 20061101, end: 20061201
  3. EPIRUBICIN [Suspect]
     Indication: BREAST CANCER
     Route: 041
     Dates: start: 20061101, end: 20061201
  4. FLUOROURACILE [Suspect]
     Indication: BREAST CANCER
     Route: 041
     Dates: start: 20061101, end: 20061201
  5. TRASTUZUMAB [Suspect]
     Indication: BREAST CANCER
     Route: 041
     Dates: start: 20070101, end: 20070201

REACTIONS (2)
  - ACUTE LYMPHOCYTIC LEUKAEMIA [None]
  - ACUTE MYELOID LEUKAEMIA [None]
